FAERS Safety Report 8234815-9 (Version None)
Quarter: 2012Q1

REPORT INFORMATION
  Report Type: 
  Country: None (occurrence: None)
  Receive Date: 20120326
  Receipt Date: 20120313
  Transmission Date: 20120608
  Serious: Yes (Hospitalization, Other)
  Sender: FDA-Public Use
  Company Number: GB-ROCHE-1043840

PATIENT
  Sex: Male
  Weight: 78 kg

DRUGS (5)
  1. ALENDRONIC ACID [Concomitant]
  2. PREDNISONE TAB [Concomitant]
  3. AZULFIDINE [Concomitant]
  4. MABTHERA [Suspect]
     Indication: RHEUMATOID ARTHRITIS
     Dosage: LAST DOSE PRIOR TO SAE: 27 MAY 2011
     Route: 065
     Dates: start: 20110510
  5. ADCAL [Concomitant]

REACTIONS (2)
  - WOUND DEHISCENCE [None]
  - METASTATIC MALIGNANT MELANOMA [None]
